FAERS Safety Report 4501795-9 (Version None)
Quarter: 2004Q3

REPORT INFORMATION
  Report Type: 
  Country: None (occurrence: None)
  Receive Date: 20040928
  Receipt Date: 20040601
  Transmission Date: 20050211
  Serious: No
  Sender: FDA-Public Use
  Company Number: 04P-163-0262442-00

PATIENT
  Age: 60 Year
  Sex: Female
  Weight: 94.3482 kg

DRUGS (5)
  1. HUMIRA [Suspect]
     Indication: RHEUMATOID ARTHRITIS
     Dosage: 40MG, 1 IN 2 WK, SUBCUTANEOUS
     Route: 058
     Dates: start: 20040401
  2. GLUCOPHAGE [Concomitant]
  3. ROSIGLITAZONE MALEATE [Concomitant]
  4. GLIMEPIRIDE [Concomitant]
  5. POTASSIUM CHLORIDE [Concomitant]

REACTIONS (7)
  - CHEST DISCOMFORT [None]
  - MULTIPLE ALLERGIES [None]
  - PRODUCTIVE COUGH [None]
  - PULMONARY CONGESTION [None]
  - RESPIRATORY TRACT CONGESTION [None]
  - RHINORRHOEA [None]
  - SINUS CONGESTION [None]
